FAERS Safety Report 8954753 (Version 2)
Quarter: 2012Q4

REPORT INFORMATION
  Report Type: 
  Country: BR (occurrence: BR)
  Receive Date: 20121207
  Receipt Date: 20121221
  Transmission Date: 20130627
  Serious: Yes (Hospitalization)
  Sender: FDA-Public Use
  Company Number: BR-GLAXOSMITHKLINE-A1004437A

PATIENT
  Age: 26 Year
  Sex: Female
  Weight: 90 kg

DRUGS (5)
  1. REVOLADE [Suspect]
     Indication: AUTOIMMUNE THROMBOCYTOPENIA
     Dosage: 75MG per day
     Route: 065
     Dates: start: 20121109, end: 20121129
  2. CORTICOID [Suspect]
     Indication: PRODUCT USED FOR UNKNOWN INDICATION
     Route: 048
     Dates: start: 20121109
  3. RITUXIMAB [Suspect]
     Route: 065
     Dates: start: 20121125
  4. IMMUNOGLOBULIN [Suspect]
     Route: 065
     Dates: start: 20121125
  5. CORTICOID [Concomitant]

REACTIONS (5)
  - Pulmonary embolism [Recovered/Resolved]
  - Haemorrhage [Recovered/Resolved]
  - Thrombocytopenia [Recovered/Resolved]
  - Painful respiration [Recovered/Resolved]
  - Drug ineffective [Unknown]
